FAERS Safety Report 9302651 (Version 1)
Quarter: 2013Q2

REPORT INFORMATION
  Report Type: Spontaneous
  Country: US (occurrence: US)
  Receive Date: 20130522
  Receipt Date: 20130522
  Transmission Date: 20140414
  Serious: Yes (Other)
  Sender: FDA-Public Use
  Company Number: US-BAYER-2013-062728

PATIENT
  Sex: Female

DRUGS (1)
  1. MIRENA [Suspect]
     Indication: MENORRHAGIA
     Dosage: UNK
     Route: 015
     Dates: start: 20080424

REACTIONS (12)
  - Urinary tract infection [None]
  - Dyspareunia [None]
  - Depressed mood [None]
  - Smear cervix abnormal [None]
  - Nervousness [None]
  - Libido decreased [None]
  - Back pain [None]
  - Arthritis [None]
  - Weight increased [None]
  - Weight decreased [None]
  - Pruritus [None]
  - Hypertension [None]
